FAERS Safety Report 18658479 (Version 1)
Quarter: 2020Q4

REPORT INFORMATION
  Report Type: Spontaneous
  Country: IT (occurrence: IT)
  Receive Date: 20201224
  Receipt Date: 20201224
  Transmission Date: 20210114
  Serious: Yes (Hospitalization, Other)
  Sender: FDA-Public Use
  Company Number: IT-BRISTOL-MYERS SQUIBB COMPANY-BMS-2020-106799

PATIENT
  Age: 82 Year
  Sex: Female
  Weight: 60 kg

DRUGS (1)
  1. COUMADIN [Suspect]
     Active Substance: WARFARIN SODIUM
     Indication: THROMBOSIS PROPHYLAXIS
     Dosage: UNK
     Route: 048

REACTIONS (5)
  - Subarachnoid haemorrhage [Recovering/Resolving]
  - Haematoma muscle [Recovering/Resolving]
  - Pleural effusion [Recovering/Resolving]
  - Multiple injuries [Recovering/Resolving]
  - Multiple fractures [Recovering/Resolving]

NARRATIVE: CASE EVENT DATE: 20201128
